FAERS Safety Report 4656475-6 (Version None)
Quarter: 2005Q2

REPORT INFORMATION
  Report Type: 
  Country: None (occurrence: None)
  Receive Date: 20050504
  Receipt Date: 20050422
  Transmission Date: 20051028
  Serious: Yes (Hospitalization)
  Sender: FDA-Public Use
  Company Number: 05P-056-0291295-00

PATIENT
  Age: 71 Year
  Sex: Female

DRUGS (1)
  1. DEPAKENE [Suspect]
     Indication: CONVULSION
     Dosage: 500 MG, 2 IN 1 D, ORAL
     Route: 048
     Dates: start: 20050102, end: 20050128

REACTIONS (2)
  - HYPOTONIA [None]
  - SOMNOLENCE [None]
